FAERS Safety Report 16680214 (Version 2)
Quarter: 2019Q3

REPORT INFORMATION
  Report Type: Report from Study
  Country: JP (occurrence: JP)
  Receive Date: 20190807
  Receipt Date: 20190824
  Transmission Date: 20191004
  Serious: Yes (Hospitalization)
  Sender: FDA-Public Use
  Company Number: PHJP2019JP010305

PATIENT
  Age: 71 Year
  Sex: Female
  Weight: 53 kg

DRUGS (1)
  1. TAFINLAR [Suspect]
     Active Substance: DABRAFENIB MESYLATE
     Indication: OVARIAN CANCER
     Dosage: 300 MG, UNK
     Route: 048
     Dates: start: 20180607

REACTIONS (4)
  - Malignant neoplasm progression [Not Recovered/Not Resolved]
  - Haematochezia [Recovered/Resolved]
  - Ovarian cancer [Not Recovered/Not Resolved]
  - Product use in unapproved indication [Unknown]

NARRATIVE: CASE EVENT DATE: 20190508
